FAERS Safety Report 4480552-6 (Version None)
Quarter: 2004Q4

REPORT INFORMATION
  Report Type: 
  Country: None (occurrence: None)
  Receive Date: 20041019
  Receipt Date: 20041006
  Transmission Date: 20050328
  Serious: Yes (Hospitalization)
  Sender: FDA-Public Use
  Company Number: 2004SE03837

PATIENT
  Age: 60 Year
  Sex: Female

DRUGS (4)
  1. OXIS [Suspect]
     Indication: CHRONIC OBSTRUCTIVE AIRWAYS DISEASE
     Dosage: 18 UG DAILY IH
     Route: 055
     Dates: start: 19990101
  2. SPIROCORT [Suspect]
     Indication: CHRONIC OBSTRUCTIVE AIRWAYS DISEASE
     Dosage: 800 UG DAILY IH
     Route: 055
     Dates: start: 19990101
  3. CORODIL [Concomitant]
  4. CENTYL MED KALIUMKLORID [Concomitant]

REACTIONS (9)
  - CHEST WALL PAIN [None]
  - CHRONIC OBSTRUCTIVE AIRWAYS DISEASE EXACERBATED [None]
  - DENTAL PROSTHESIS USER [None]
  - DRY MOUTH [None]
  - HEADACHE [None]
  - IMPLANT SITE INFECTION [None]
  - MYALGIA [None]
  - NASOPHARYNGITIS [None]
  - NAUSEA [None]
